FAERS Safety Report 16861926 (Version 2)
Quarter: 2024Q3

REPORT INFORMATION
  Report Type: Report from Study
  Country: DE (occurrence: DE)
  Receive Date: 20190927
  Receipt Date: 20240925
  Transmission Date: 20241017
  Serious: Yes (Death, Congenital Anomaly, Other)
  Sender: UCB
  Company Number: DE-UCBSA-2019041233

PATIENT

DRUGS (4)
  1. LACOSAMIDE [Suspect]
     Active Substance: LACOSAMIDE
     Indication: Epilepsy
     Dosage: THE MOTHER RECEIVED LACOSAMIDE DAILY FOR EPILEPSY DURING HER PREGNANCY
     Route: 064
  2. LACOSAMIDE [Suspect]
     Active Substance: LACOSAMIDE
     Indication: Drug therapy
  3. VALPROIC ACID [Suspect]
     Active Substance: VALPROIC ACID
     Indication: Epilepsy
     Dosage: THE MOTHER RECEIVED VALPROATE FOR EPILEPSY DURING HER PREGNANCY
     Route: 064
  4. VALPROIC ACID [Suspect]
     Active Substance: VALPROIC ACID
     Indication: Drug therapy

REACTIONS (2)
  - Congenital anomaly [Fatal]
  - Maternal exposure during pregnancy [Unknown]
